FAERS Safety Report 17409449 (Version 1)
Quarter: 2020Q1

REPORT INFORMATION
  Report Type: Spontaneous
  Country: DE (occurrence: DE)
  Receive Date: 20200212
  Receipt Date: 20200212
  Transmission Date: 20200409
  Serious: Yes (Life-Threatening, Other)
  Sender: FDA-Public Use
  Company Number: DE-ASTRAZENECA-2020SE20013

PATIENT
  Sex: Male

DRUGS (2)
  1. TAGRISSO [Suspect]
     Active Substance: OSIMERTINIB
     Indication: BRONCHIAL CARCINOMA
     Route: 048
  2. GEOTRIF [Concomitant]
     Dates: start: 201811

REACTIONS (4)
  - Small cell lung cancer [Unknown]
  - Thrombosis [Unknown]
  - Pulmonary embolism [Unknown]
  - Malignant transformation [Unknown]
